FAERS Safety Report 18205042 (Version 2)
Quarter: 2020Q3

REPORT INFORMATION
  Report Type: Other
  Country: US (occurrence: US)
  Receive Date: 20200828
  Receipt Date: 20200907
  Transmission Date: 20201103
  Serious: Yes (Hospitalization)
  Sender: FDA-Public Use
  Company Number: US-ROCHE-2662776

PATIENT
  Sex: Female

DRUGS (1)
  1. OCREVUS [Suspect]
     Active Substance: OCRELIZUMAB
     Indication: RELAPSING MULTIPLE SCLEROSIS
     Route: 042
     Dates: start: 20190305

REACTIONS (7)
  - Urinary tract infection [Unknown]
  - Skin lesion [Unknown]
  - Pneumonia [Unknown]
  - Influenza [Unknown]
  - Pain [Unknown]
  - Foot fracture [Not Recovered/Not Resolved]
  - Foot deformity [Not Recovered/Not Resolved]
